FAERS Safety Report 8151240-X (Version None)
Quarter: 2012Q1

REPORT INFORMATION
  Report Type: 
  Country: None (occurrence: None)
  Receive Date: 20120220
  Receipt Date: 20120210
  Transmission Date: 20120608
  Serious: Yes (Hospitalization)
  Sender: FDA-Public Use
  Company Number: DE-TEVA-323210ISR

PATIENT
  Age: 57 Year
  Sex: Female

DRUGS (5)
  1. METHOTREXATE [Suspect]
     Dates: start: 20091125
  2. ABATACEPT [Suspect]
  3. METHOTREXATE [Suspect]
     Dates: start: 20090520
  4. ABATACEPT [Suspect]
     Dates: start: 20090201
  5. ABATACEPT [Suspect]
     Dates: start: 20110119

REACTIONS (1)
  - CELLULITIS [None]
